FAERS Safety Report 25622323 (Version 2)
Quarter: 2025Q3

REPORT INFORMATION
  Report Type: Spontaneous
  Country: GB (occurrence: GB)
  Receive Date: 20250730
  Receipt Date: 20250811
  Transmission Date: 20251020
  Serious: Yes (Hospitalization, Other)
  Sender: MYLAN
  Company Number: GB-MYLANLABS-2025M1053627

PATIENT
  Age: 56 Year
  Sex: Female

DRUGS (16)
  1. CLOZARIL [Suspect]
     Active Substance: CLOZAPINE
     Indication: Schizophrenia
     Dates: start: 20010701, end: 20250718
  2. CLOZARIL [Suspect]
     Active Substance: CLOZAPINE
     Dosage: UNK, BID (50MG OM, 200MG ON FREQUENCY
  3. TIOTROPIUM BROMIDE [Concomitant]
     Active Substance: TIOTROPIUM BROMIDE
     Dosage: 1 DOSAGE FORM, QD (1 PUFF ? OD)
  4. CARBOCYSTEINE [Concomitant]
     Active Substance: CARBOCYSTEINE
     Dosage: 750 MILLIGRAM, BID (PO BID)
  5. CETIRIZINE [Concomitant]
     Active Substance: CETIRIZINE HYDROCHLORIDE
     Dosage: 10 MILLIGRAM, QD  (PO OD)
  6. ESTRADIOL [Concomitant]
     Active Substance: ESTRADIOL
     Dosage: 2 DOSAGE FORM, QD (2 PUMPS DAILY TOPICAL)
  7. FLUTIFORM [Concomitant]
     Active Substance: FLUTIFORM
     Dosage: 2 DOSAGE FORM, BID (2 PUFFS BD)
  8. OMEPRAZOLE [Concomitant]
     Active Substance: OMEPRAZOLE
     Dosage: 20 MILLIGRAM, QD (PO OD)
  9. ALBUTEROL [Concomitant]
     Active Substance: ALBUTEROL
  10. PROGESTERONE [Concomitant]
     Active Substance: PROGESTERONE
     Dosage: 100 MILLIGRAM, QD (PO, OD)
  11. FOLIC ACID [Concomitant]
     Active Substance: FOLIC ACID
     Dosage: 5 MILLIGRAM, QD(PO. OD)
  12. RAMIPRIL [Concomitant]
     Active Substance: RAMIPRIL
     Dosage: 5 MILLIGRAM, AM (OM)
  13. SENNA [Concomitant]
     Active Substance: SENNOSIDES
     Dosage: 15 MILLIGRAM, PM (PO,ON)
  14. MONTELUKAST [Concomitant]
     Active Substance: MONTELUKAST
     Dosage: 10 MILLIGRAM, QD
  15. VALPROIC ACID [Concomitant]
     Active Substance: VALPROIC ACID
     Dosage: 500 MILLIGRAM, BID (PO BD)
  16. VALPROIC ACID [Concomitant]
     Active Substance: VALPROIC ACID
     Dosage: 250 MILLIGRAM, QD (PO, OD)

REACTIONS (4)
  - General physical health deterioration [Unknown]
  - Thrombocytopenia [Recovering/Resolving]
  - Neutrophil count decreased [Recovered/Resolved]
  - White blood cell count decreased [Recovered/Resolved]

NARRATIVE: CASE EVENT DATE: 20250723
